FAERS Safety Report 18553215 (Version 1)
Quarter: 2020Q4

REPORT INFORMATION
  Report Type: Spontaneous
  Country: US (occurrence: US)
  Receive Date: 20201127
  Receipt Date: 20201127
  Transmission Date: 20210114
  Serious: Yes (Death)
  Sender: FDA-Public Use
  Company Number: US-TEVA-2020-US-1853706

PATIENT
  Sex: Male

DRUGS (13)
  1. ONDANSETRON HYDROCHLORIDE. [Concomitant]
     Active Substance: ONDANSETRON HYDROCHLORIDE
  2. PERCOCET [Concomitant]
     Active Substance: ACETAMINOPHEN\OXYCODONE HYDROCHLORIDE
  3. METOPROLOL SUCCINATE ER [Concomitant]
     Active Substance: METOPROLOL SUCCINATE
  4. BRIVIACT [Concomitant]
     Active Substance: BRIVARACETAM
  5. NICOTINE. [Concomitant]
     Active Substance: NICOTINE
  6. ECOTRIN [Concomitant]
     Active Substance: ASPIRIN
  7. SYNRIBO [Suspect]
     Active Substance: OMACETAXINE MEPESUCCINATE
     Dosage: DOSE; 2.8MG/0.8ML,TWICE DAILY FOR 14 DAYS OF A 28 DAY CYCLE
     Route: 065
  8. CRESTOR [Concomitant]
     Active Substance: ROSUVASTATIN CALCIUM
  9. CLONAZEPAM. [Concomitant]
     Active Substance: CLONAZEPAM
  10. NITROGLYCERIN. [Concomitant]
     Active Substance: NITROGLYCERIN
  11. LEXAPRO [Concomitant]
     Active Substance: ESCITALOPRAM OXALATE
  12. ENTRESTO [Concomitant]
     Active Substance: SACUBITRIL\VALSARTAN
  13. AMLODIPINE BESYLAE [Concomitant]

REACTIONS (1)
  - Death [Fatal]
